FAERS Safety Report 17859148 (Version 1)
Quarter: 2020Q2

REPORT INFORMATION
  Report Type: Report from Study
  Country: NO (occurrence: NO)
  Receive Date: 20200604
  Receipt Date: 20200604
  Transmission Date: 20200714
  Serious: Yes (Life-Threatening, Hospitalization)
  Sender: FDA-Public Use
  Company Number: NO-DECIPHERA PHARMACEUTICALS, LLC-2085442

PATIENT
  Age: 54 Year
  Sex: Female
  Weight: 71 kg

DRUGS (10)
  1. QINLOCK [Suspect]
     Active Substance: RIPRETINIB
     Indication: GASTROINTESTINAL STROMAL TUMOUR
     Route: 048
     Dates: start: 20200303, end: 20200310
  2. METOCLOPRAMIDE. [Concomitant]
     Active Substance: METOCLOPRAMIDE
     Dates: start: 20180324
  3. LEVAXIN (LEVOTHYROXINE SODIUM) [Concomitant]
     Dates: start: 200305
  4. MAGNESIUM SULFATE. [Concomitant]
     Active Substance: MAGNESIUM SULFATE
     Dates: start: 202002
  5. VITAMIN B12 [Concomitant]
     Active Substance: CYANOCOBALAMIN
     Dates: start: 202002
  6. ONDANSETRON HYDROCHLORIDE. [Concomitant]
     Active Substance: ONDANSETRON HYDROCHLORIDE
     Dates: start: 20180324
  7. MORPHINE (MORPHINE HYDROCHLORIDE) [Concomitant]
     Active Substance: MORPHINE
     Dates: start: 20200227
  8. DUPHALAC [Concomitant]
     Active Substance: LACTULOSE
     Dates: start: 20200303
  9. QINLOCK [Suspect]
     Active Substance: RIPRETINIB
     Route: 048
     Dates: start: 20200330
  10. LAXOBERAL (SODIUM PICOSULFATE) [Concomitant]
     Dates: start: 20200303

REACTIONS (2)
  - Large intestine perforation [Recovered/Resolved]
  - General physical health deterioration [Recovered/Resolved]

NARRATIVE: CASE EVENT DATE: 20200304
